FAERS Safety Report 10590339 (Version 1)
Quarter: 2014Q4

REPORT INFORMATION
  Report Type: Spontaneous
  Country: CA (occurrence: CA)
  Receive Date: 20141118
  Receipt Date: 20141118
  Transmission Date: 20150529
  Serious: Yes (Death, Other)
  Sender: FDA-Public Use
  Company Number: CA-SA-2014SA157032

PATIENT
  Sex: Male

DRUGS (2)
  1. FLUDARA [Suspect]
     Active Substance: FLUDARABINE PHOSPHATE
     Route: 065
  2. BUSULFEX [Suspect]
     Active Substance: BUSULFAN
     Route: 042

REACTIONS (3)
  - Post procedural haemorrhage [Fatal]
  - Juvenile chronic myelomonocytic leukaemia [Fatal]
  - Lymphoproliferative disorder [Fatal]
